FAERS Safety Report 13913623 (Version 1)
Quarter: 2017Q3

REPORT INFORMATION
  Report Type: Spontaneous
  Country: US (occurrence: None)
  Receive Date: 20170826
  Receipt Date: 20170826
  Transmission Date: 20171127
  Serious: No
  Sender: FDA-Public Use
  Company Number: None

PATIENT
  Age: 31 Year
  Sex: Male

DRUGS (1)
  1. EPCLUSA [Suspect]
     Active Substance: SOFOSBUVIR\VELPATASVIR
     Indication: HEPATITIS VIRAL
     Dosage: 400MG/100MG (1 TAB) DAILY ORAL
     Route: 048
     Dates: start: 20170804

REACTIONS (1)
  - Chromaturia [None]

NARRATIVE: CASE EVENT DATE: 20170818
